FAERS Safety Report 22274462 (Version 3)
Quarter: 2023Q2

REPORT INFORMATION
  Report Type: Report from Study
  Country: BR (occurrence: BR)
  Receive Date: 20230502
  Receipt Date: 20230531
  Transmission Date: 20230722
  Serious: Yes (Hospitalization)
  Sender: FDA-Public Use
  Company Number: BR-DSRSG-DS8201AU305_21015008_000001

PATIENT
  Age: 58 Year
  Sex: Female
  Weight: 79.6 kg

DRUGS (8)
  1. FAM-TRASTUZUMAB DERUXTECAN-NXKI [Suspect]
     Active Substance: FAM-TRASTUZUMAB DERUXTECAN-NXKI
     Indication: HER2 positive breast cancer
     Dosage: 5.4 MG/KG (ACTUAL DOSE: 435.24 MG), ONCE EVERY 3 WK
     Route: 041
     Dates: start: 20230217, end: 20230217
  2. FAM-TRASTUZUMAB DERUXTECAN-NXKI [Suspect]
     Active Substance: FAM-TRASTUZUMAB DERUXTECAN-NXKI
     Dosage: 5.4 MG/KG (ACTUAL DOSE: 435.24 MG), ONCE EVERY 3 WK
     Route: 041
     Dates: start: 20230309, end: 20230309
  3. FAM-TRASTUZUMAB DERUXTECAN-NXKI [Suspect]
     Active Substance: FAM-TRASTUZUMAB DERUXTECAN-NXKI
     Dosage: 5.4 MG/KG (ACTUAL DOSE: 435.24 MG), ONCE EVERY 3 WK
     Route: 041
     Dates: start: 20230330, end: 20230330
  4. FAM-TRASTUZUMAB DERUXTECAN-NXKI [Suspect]
     Active Substance: FAM-TRASTUZUMAB DERUXTECAN-NXKI
     Dosage: 5.4 MG/KG (ACTUAL DOSE: 435.24 MG), ONCE EVERY 3 WK
     Route: 041
     Dates: start: 20230420, end: 20230420
  5. ANASTROZOLE [Concomitant]
     Active Substance: ANASTROZOLE
     Indication: Adjuvant therapy
     Dosage: 1 MG, QD
     Route: 048
     Dates: start: 202212
  6. DIBUCAINE\POLICRESULEN [Concomitant]
     Active Substance: DIBUCAINE\POLICRESULEN
     Indication: Haemorrhoids
     Dosage: 1 DF, BID
     Route: 054
     Dates: start: 20230213
  7. OMEPRAZOLE [Concomitant]
     Active Substance: OMEPRAZOLE
     Indication: Nausea
     Dosage: 20 MG, QD
     Route: 048
     Dates: start: 20230218, end: 20230426
  8. ONDANSETRON [Concomitant]
     Active Substance: ONDANSETRON
     Indication: Nausea
     Dosage: 8 MG, TID
     Route: 048
     Dates: start: 20230331, end: 20230402

REACTIONS (1)
  - Pneumonia bacterial [Recovered/Resolved]

NARRATIVE: CASE EVENT DATE: 20230425
